FAERS Safety Report 5602561-3 (Version None)
Quarter: 2008Q1

REPORT INFORMATION
  Report Type: 
  Country: None (occurrence: None)
  Receive Date: 20080125
  Receipt Date: 20080116
  Transmission Date: 20080703
  Serious: Yes (Disabling)
  Sender: FDA-Public Use
  Company Number: US-MERCK-0801USA03510

PATIENT
  Age: 69 Year
  Sex: Female

DRUGS (2)
  1. FOSAMAX PLUS D [Suspect]
     Indication: OSTEOPOROSIS
     Route: 048
     Dates: start: 20080101
  2. LEVOXYL [Concomitant]
     Route: 065

REACTIONS (2)
  - PHOTOPSIA [None]
  - VISUAL BRIGHTNESS [None]
